FAERS Safety Report 23595006 (Version 1)
Quarter: 2024Q1

REPORT INFORMATION
  Report Type: Spontaneous
  Country: AU (occurrence: AU)
  Receive Date: 20240305
  Receipt Date: 20240305
  Transmission Date: 20240410
  Serious: Yes (Other)
  Sender: FDA-Public Use
  Company Number: AU-BRISTOL-MYERS SQUIBB COMPANY-2024-026968

PATIENT
  Age: 84 Year
  Sex: Male

DRUGS (1)
  1. ELIQUIS [Suspect]
     Active Substance: APIXABAN
     Indication: Myocardial infarction

REACTIONS (5)
  - Muscular weakness [Unknown]
  - Decreased appetite [Unknown]
  - Hypertension [Unknown]
  - Heart rate irregular [Unknown]
  - Off label use [Unknown]

NARRATIVE: CASE EVENT DATE: 20230101
